FAERS Safety Report 10228586 (Version 2)
Quarter: 2015Q1

REPORT INFORMATION
  Report Type: Spontaneous
  Country: US (occurrence: US)
  Receive Date: 20140610
  Receipt Date: 20150209
  Transmission Date: 20150720
  Serious: Yes (Hospitalization, Other)
  Sender: FDA-Public Use
  Company Number: US-BAYER-2014-085383

PATIENT
  Age: 49 Year
  Sex: Female
  Weight: 81.18 kg

DRUGS (9)
  1. PROAIR HFA [Concomitant]
     Active Substance: ALBUTEROL SULFATE
  2. YASMIN [Suspect]
     Active Substance: DROSPIRENONE\ETHINYL ESTRADIOL
     Dosage: UNK
     Dates: start: 2006, end: 200902
  3. IRON SULFATE [Concomitant]
     Active Substance: FERROUS SULFATE ANHYDROUS
  4. POLY-TUSSIN DM [Concomitant]
     Active Substance: CHLORPHENIRAMINE MALEATE\DEXTROMETHORPHAN HYDROBROMIDE\PHENYLEPHRINE HYDROCHLORIDE
  5. ZITHROMAX [Concomitant]
     Active Substance: AZITHROMYCIN DIHYDRATE
  6. TUSSIONEX PENNKINETIC [Concomitant]
     Active Substance: CHLORPHENIRAMINE\HYDROCODONE
     Route: 048
  7. LEVAQUIN [Concomitant]
     Active Substance: LEVOFLOXACIN
     Dosage: 750 MG, UNK
     Route: 048
  8. PREDNISONE. [Concomitant]
     Active Substance: PREDNISONE
     Dosage: 20 MG, UNK
     Route: 048
  9. AMOXICILINA + CLAVULANICO [Concomitant]
     Dosage: 875 MG, UNK
     Route: 048

REACTIONS (9)
  - Pain [None]
  - General physical health deterioration [None]
  - Bronchial hyperreactivity [None]
  - Pulmonary embolism [None]
  - Pulmonary fibrosis [None]
  - Abdominal pain [None]
  - Dyspnoea [None]
  - Injury [None]
  - Pyrexia [None]

NARRATIVE: CASE EVENT DATE: 200902
